FAERS Safety Report 23358023 (Version 1)
Quarter: 2024Q1

REPORT INFORMATION
  Report Type: Spontaneous
  Country: US (occurrence: US)
  Receive Date: 20240102
  Receipt Date: 20240102
  Transmission Date: 20240409
  Serious: Yes (Death, Other)
  Sender: FDA-Public Use
  Company Number: US-OTSUKA-2023_033948

PATIENT
  Age: 66 Year
  Sex: Female
  Weight: 48.53 kg

DRUGS (1)
  1. NUEDEXTA [Suspect]
     Active Substance: DEXTROMETHORPHAN HYDROBROMIDE\QUINIDINE SULFATE
     Indication: Affect lability
     Dosage: (20-10 MG), BID
     Route: 065
     Dates: end: 20230919

REACTIONS (1)
  - Death [Fatal]

NARRATIVE: CASE EVENT DATE: 20230927
